FAERS Safety Report 16260416 (Version 1)
Quarter: 2019Q2

REPORT INFORMATION
  Report Type: Spontaneous
  Country: VE (occurrence: VE)
  Receive Date: 20190501
  Receipt Date: 20190501
  Transmission Date: 20190711
  Serious: Yes (Hospitalization, Other)
  Sender: FDA-Public Use
  Company Number: PHHY2018VE197837

PATIENT
  Age: 80 Year
  Sex: Female
  Weight: 85 kg

DRUGS (2)
  1. OZONE [Suspect]
     Active Substance: OZONE
     Indication: PRODUCT USED FOR UNKNOWN INDICATION
     Route: 065
  2. GLIVEC [Suspect]
     Active Substance: IMATINIB MESYLATE
     Indication: CHRONIC MYELOID LEUKAEMIA
     Dosage: 400 MG, QD
     Route: 048
     Dates: start: 20181122, end: 20190313

REACTIONS (19)
  - Skin necrosis [Unknown]
  - Nephrotic syndrome [Unknown]
  - Oedema peripheral [Not Recovered/Not Resolved]
  - Mucosal discolouration [Unknown]
  - Haemoglobin decreased [Unknown]
  - Face oedema [Unknown]
  - Platelet count decreased [Unknown]
  - Soft tissue necrosis [Unknown]
  - Peau d^orange [Unknown]
  - Skin infection [Not Recovered/Not Resolved]
  - Haematocrit decreased [Unknown]
  - Pseudomonas test positive [Unknown]
  - Proteinuria [Unknown]
  - Anaemia [Not Recovered/Not Resolved]
  - Bursitis [Unknown]
  - Arthralgia [Unknown]
  - Blister [Unknown]
  - Lymphadenopathy [Unknown]
  - Erythema [Recovering/Resolving]

NARRATIVE: CASE EVENT DATE: 20190313
